FAERS Safety Report 8905562 (Version 2)
Quarter: 2012Q4

REPORT INFORMATION
  Report Type: 
  Country: TR (occurrence: TR)
  Receive Date: 20121111
  Receipt Date: 20121203
  Transmission Date: 20130627
  Serious: Yes (Other)
  Sender: FDA-Public Use
  Company Number: PHHY2012TR102484

PATIENT
  Age: 47 Year
  Sex: Female

DRUGS (2)
  1. ZOLEDRONIC ACID [Suspect]
     Indication: METASTASES TO BONE
     Dosage: UNK UKN, UNK
  2. CAPECITABINE [Concomitant]
     Indication: METASTATIC NEOPLASM
     Dosage: 1000 mg/m2, BID

REACTIONS (1)
  - Malignant neoplasm progression [Unknown]
